FAERS Safety Report 8375161-2 (Version None)
Quarter: 2012Q2

REPORT INFORMATION
  Report Type: 
  Country: None (occurrence: None)
  Receive Date: 20120521
  Receipt Date: 20120508
  Transmission Date: 20120825
  Serious: Yes (Other)
  Sender: FDA-Public Use
  Company Number: NZ-MYLANLABS-2012S1009362

PATIENT
  Age: 26 Year
  Sex: Female

DRUGS (1)
  1. SPIRONOLACTONE [Suspect]
     Indication: HIRSUTISM
     Dosage: 1-2 TABS DAILY
     Route: 048
     Dates: start: 20120101

REACTIONS (1)
  - VISUAL ACUITY REDUCED [None]
